FAERS Safety Report 6570802-4 (Version None)
Quarter: 2010Q1

REPORT INFORMATION
  Report Type: 
  Country: None (occurrence: None)
  Receive Date: 20100204
  Receipt Date: 20100126
  Transmission Date: 20100710
  Serious: Yes (Death, Other)
  Sender: FDA-Public Use
  Company Number: GB-PFIZER INC-2009311876

PATIENT
  Age: 73 Year
  Sex: Female

DRUGS (7)
  1. LIPITOR [Suspect]
     Indication: BLOOD CHOLESTEROL ABNORMAL
     Dosage: 20 MG, 1X/DAY AT NIGHT
     Route: 048
     Dates: start: 20020325, end: 20091214
  2. LIPITOR [Suspect]
     Indication: CARDIOVASCULAR DISORDER
  3. CALCEOS [Concomitant]
     Indication: BONE DISORDER
     Dosage: 1 DF, 2X/DAY
     Route: 048
     Dates: start: 20080201, end: 20091201
  4. BISOPROLOL [Concomitant]
     Indication: MYOCARDIAL ISCHAEMIA
     Dosage: 2.5 MG, 1X/DAY
     Route: 048
     Dates: start: 20070501, end: 20091201
  5. CITALOPRAM [Concomitant]
     Dosage: 10 MG, 1X/DAY
     Route: 048
     Dates: start: 20090701, end: 20091201
  6. ACETYLSALICYLIC ACID [Concomitant]
     Indication: ANTIPLATELET THERAPY
     Dosage: 75 MG, 1X/DAY
     Route: 048
     Dates: start: 20030301, end: 20091214
  7. LANSOPRAZOLE [Concomitant]
     Dosage: 15 MG, 1X/DAY
     Route: 048
     Dates: start: 20030301, end: 20091214

REACTIONS (2)
  - JAUNDICE CHOLESTATIC [None]
  - PANCREATIC CARCINOMA [None]
